FAERS Safety Report 8213231-X (Version None)
Quarter: 2012Q1

REPORT INFORMATION
  Report Type: 
  Country: None (occurrence: None)
  Receive Date: 20120315
  Receipt Date: 20120312
  Transmission Date: 20120608
  Serious: Yes (Other)
  Sender: FDA-Public Use
  Company Number: US-PFIZER INC-2012066127

PATIENT
  Sex: Female

DRUGS (4)
  1. GLUCOTROL [Suspect]
     Dosage: UNK
  2. LIPITOR [Suspect]
     Dosage: UNK
  3. LOPID [Suspect]
     Dosage: UNK
  4. ACCUPRIL [Suspect]
     Dosage: UNK

REACTIONS (1)
  - HYPERGLYCAEMIA [None]
